FAERS Safety Report 5366989-1 (Version None)
Quarter: 2007Q2

REPORT INFORMATION
  Report Type: 
  Country: None (occurrence: None)
  Receive Date: 20070619
  Receipt Date: 20070606
  Transmission Date: 20071010
  Serious: Yes (Other)
  Sender: FDA-Public Use
  Company Number: GXKR2007GB04948

PATIENT
  Age: 52 Year
  Sex: Female

DRUGS (4)
  1. OMEPRAZOLE [Suspect]
     Indication: GASTRITIS
     Dosage: 20 MG, ORAL
     Route: 048
     Dates: start: 20070510, end: 20070517
  2. CITALOPRAM HYDROBROMIDE [Concomitant]
  3. FUROSEMIDE [Concomitant]
  4. LISINOPRIL [Concomitant]

REACTIONS (1)
  - SWELLING FACE [None]
